FAERS Safety Report 9243226 (Version 2)
Quarter: 2013Q2

REPORT INFORMATION
  Report Type: Spontaneous
  Country: JP (occurrence: JP)
  Receive Date: 20130419
  Receipt Date: 20130503
  Transmission Date: 20140414
  Serious: No
  Sender: FDA-Public Use
  Company Number: JP-ASTRAZENECA-2013SE25336

PATIENT
  Age: 50 Year
  Sex: Male

DRUGS (3)
  1. SEROQUEL [Suspect]
     Route: 048
  2. DIOVAN [Suspect]
     Route: 048
  3. ZOPICOOL [Suspect]
     Route: 048

REACTIONS (1)
  - Hepatic function abnormal [Unknown]
